FAERS Safety Report 7104647-3 (Version None)
Quarter: 2010Q4

REPORT INFORMATION
  Report Type: 
  Country: None (occurrence: None)
  Receive Date: 20101116
  Receipt Date: 20101111
  Transmission Date: 20110411
  Serious: Yes (Hospitalization, Other)
  Sender: FDA-Public Use
  Company Number: US-RB-014292-10

PATIENT
  Age: 58 Year
  Sex: Male

DRUGS (2)
  1. SUBOXONE [Suspect]
     Indication: PRODUCT USED FOR UNKNOWN INDICATION
     Dosage: DOSING INFORMATION UNKNOWN
     Route: 065
  2. SUBOXONE [Suspect]
     Indication: PRODUCT USED FOR UNKNOWN INDICATION
     Dosage: SUBLINGUAL FILM / DOSING INFORMATION UNKNOWN.
     Route: 065
     Dates: start: 20100101

REACTIONS (5)
  - EPISTAXIS [None]
  - INTENTIONAL DRUG MISUSE [None]
  - LIVER DISORDER [None]
  - RENAL DISORDER [None]
  - TOOTHACHE [None]
